FAERS Safety Report 7450166-4 (Version None)
Quarter: 2011Q2

REPORT INFORMATION
  Report Type: 
  Country: None (occurrence: None)
  Receive Date: 20110502
  Receipt Date: 20110427
  Transmission Date: 20111010
  Serious: No
  Sender: FDA-Public Use
  Company Number: US-PFIZER INC-2011091679

PATIENT
  Sex: Female

DRUGS (3)
  1. ADVIL LIQUI-GELS [Suspect]
     Dosage: UNK
     Route: 048
     Dates: start: 20110401
  2. ACTOS [Concomitant]
     Indication: BLOOD GLUCOSE INCREASED
     Dosage: 30 MG, 1X/DAY
     Route: 048
  3. AMLODIPINE BESILATE [Concomitant]
     Indication: HYPERTENSION
     Dosage: 5 MG, 1X/DAY
     Route: 048

REACTIONS (2)
  - HEADACHE [None]
  - NECK PAIN [None]
